FAERS Safety Report 7205213-1 (Version None)
Quarter: 2010Q4

REPORT INFORMATION
  Report Type: 
  Country: None (occurrence: None)
  Receive Date: 20101231
  Receipt Date: 20101222
  Transmission Date: 20110411
  Serious: No
  Sender: FDA-Public Use
  Company Number: US-BIOGENIDEC-2010BI037792

PATIENT
  Age: 55 Year
  Sex: Female

DRUGS (2)
  1. TYSABRI [Suspect]
     Indication: MULTIPLE SCLEROSIS
     Route: 042
     Dates: start: 20100721
  2. ANTIDEPRESSANTS (NOS) [Concomitant]
     Indication: DEPRESSION

REACTIONS (7)
  - ABDOMINAL DISTENSION [None]
  - ABDOMINAL PAIN UPPER [None]
  - APHASIA [None]
  - BACK PAIN [None]
  - BLADDER DISCOMFORT [None]
  - DEPRESSION [None]
  - MEMORY IMPAIRMENT [None]
